FAERS Safety Report 6923509-5 (Version None)
Quarter: 2010Q3

REPORT INFORMATION
  Report Type: 
  Country: None (occurrence: None)
  Receive Date: 20100813
  Receipt Date: 20100805
  Transmission Date: 20110219
  Serious: Yes (Hospitalization)
  Sender: FDA-Public Use
  Company Number: A0790030A

PATIENT
  Age: 54 Year
  Sex: Male
  Weight: 89.1 kg

DRUGS (7)
  1. AVANDIA [Suspect]
     Indication: DIABETES MELLITUS
     Dosage: 4MG PER DAY
     Route: 048
     Dates: start: 20000701, end: 20060601
  2. ZOCOR [Concomitant]
  3. LANOXIN [Concomitant]
  4. TENORMIN [Concomitant]
  5. NIASPAN [Concomitant]
  6. PRINZIDE [Concomitant]
  7. VIOXX [Concomitant]

REACTIONS (7)
  - ACUTE CORONARY SYNDROME [None]
  - CARDIAC FAILURE CONGESTIVE [None]
  - CARDIAC HYPERTROPHY [None]
  - CORONARY ARTERY DISEASE [None]
  - INTRACARDIAC THROMBUS [None]
  - ISCHAEMIC CARDIOMYOPATHY [None]
  - MYOCARDIAL INFARCTION [None]
